FAERS Safety Report 5632236-6 (Version None)
Quarter: 2008Q1

REPORT INFORMATION
  Report Type: 
  Country: None (occurrence: None)
  Receive Date: 20080220
  Receipt Date: 20080212
  Transmission Date: 20080703
  Serious: Yes (Disabling, Other)
  Sender: FDA-Public Use
  Company Number: US-ALLERGAN-0801766US

PATIENT
  Sex: Female

DRUGS (3)
  1. RESTASIS [Suspect]
     Indication: DRY EYE
     Dosage: UNK, BID
     Route: 047
     Dates: start: 20071201, end: 20080207
  2. FOSAMAX [Concomitant]
     Indication: RESORPTION BONE INCREASED
     Dosage: UNK, Q WEEK
  3. VITAMINS [Concomitant]

REACTIONS (3)
  - EYE IRRITATION [None]
  - PHOTOPSIA [None]
  - VITREOUS FLOATERS [None]
